FAERS Safety Report 23081775 (Version 1)
Quarter: 2023Q4

REPORT INFORMATION
  Report Type: Spontaneous
  Country: US (occurrence: US)
  Receive Date: 20231019
  Receipt Date: 20231019
  Transmission Date: 20240109
  Serious: Yes (Other)
  Sender: FDA-Public Use
  Company Number: US-SANOFI-01802645

PATIENT
  Sex: Female

DRUGS (2)
  1. LANTUS SOLOSTAR [Suspect]
     Active Substance: INSULIN GLARGINE
     Indication: Type 2 diabetes mellitus
     Dosage: 20 U QAM AND 80 U QPM, BID
  2. BYDUREON [Concomitant]
     Active Substance: EXENATIDE
     Dosage: UNK

REACTIONS (2)
  - Dementia [Not Recovered/Not Resolved]
  - Inappropriate schedule of product administration [Unknown]
